FAERS Safety Report 9068938 (Version 1)
Quarter: 2013Q1

REPORT INFORMATION
  Report Type: Spontaneous
  Country: US (occurrence: None)
  Receive Date: 20130213
  Receipt Date: 20130213
  Transmission Date: 20140127
  Serious: No
  Sender: FDA-Public Use
  Company Number: None

PATIENT
  Sex: Male
  Weight: 93.44 kg

DRUGS (2)
  1. GABAPENTIN 300 MG, CAPSULE [Suspect]
  2. OXAPARIN, 600 MG [Suspect]

REACTIONS (3)
  - Dizziness [None]
  - Musculoskeletal pain [None]
  - Drug ineffective [None]
